FAERS Safety Report 24014919 (Version 2)
Quarter: 2024Q3

REPORT INFORMATION
  Report Type: Spontaneous
  Country: US (occurrence: US)
  Receive Date: 20240626
  Receipt Date: 20240710
  Transmission Date: 20241017
  Serious: No
  Sender: IDORSIA PHARMACEUTICALS
  Company Number: US-IDORSIA-008134-2024-US

PATIENT
  Age: 63 Year
  Sex: Female

DRUGS (7)
  1. QUVIVIQ [Suspect]
     Active Substance: DARIDOREXANT
     Indication: Insomnia
     Dosage: 50 MG
     Route: 048
     Dates: end: 20240616
  2. QUVIVIQ [Suspect]
     Active Substance: DARIDOREXANT
     Indication: Generalised anxiety disorder
  3. RAMELTEON [Concomitant]
     Active Substance: RAMELTEON
     Dosage: 8 MG
  4. GABAPENTIN [Concomitant]
     Active Substance: GABAPENTIN
     Dosage: 900 MG
  5. DIAZEPAM [Concomitant]
     Active Substance: DIAZEPAM
     Dosage: 22 MG
  6. MAGNESIUM [Concomitant]
     Active Substance: MAGNESIUM
  7. DIETARY SUPPLEMENT [Concomitant]
     Active Substance: DIETARY SUPPLEMENT

REACTIONS (5)
  - Rash [Recovering/Resolving]
  - Skin exfoliation [Recovering/Resolving]
  - Agitation [Recovered/Resolved]
  - Insomnia [Not Recovered/Not Resolved]
  - Road traffic accident [Unknown]

NARRATIVE: CASE EVENT DATE: 20240619
